FAERS Safety Report 25467105 (Version 2)
Quarter: 2025Q3

REPORT INFORMATION
  Report Type: Report from Study
  Country: US (occurrence: US)
  Receive Date: 20250623
  Receipt Date: 20250809
  Transmission Date: 20251021
  Serious: Yes (Other)
  Sender: ALEXION PHARMACEUTICALS
  Company Number: US-AstraZeneca-CH-00895502A

PATIENT
  Sex: Female

DRUGS (2)
  1. BENRALIZUMAB [Suspect]
     Active Substance: BENRALIZUMAB
     Indication: Asthma
     Dosage: 30 MILLIGRAM PER MILLILITRE, Q4W
     Dates: start: 20250610
  2. BENRALIZUMAB [Suspect]
     Active Substance: BENRALIZUMAB

REACTIONS (2)
  - Craniocerebral injury [Unknown]
  - Headache [Unknown]
